FAERS Safety Report 8859063 (Version 1)
Quarter: 2012Q4

REPORT INFORMATION
  Report Type: Spontaneous
  Country: US (occurrence: None)
  Receive Date: 20121024
  Receipt Date: 20121024
  Transmission Date: 20130627
  Serious: Yes (Death)
  Sender: FDA-Public Use
  Company Number: None

PATIENT
  Sex: Male

DRUGS (1)
  1. ASPIRIN [Suspect]
     Dosage: 3 tabs QID
     Dates: start: 20120501

REACTIONS (3)
  - Gastritis [None]
  - Duodenal ulcer haemorrhage [None]
  - Gastrointestinal haemorrhage [None]
